FAERS Safety Report 11850990 (Version 1)
Quarter: 2015Q4

REPORT INFORMATION
  Report Type: Spontaneous
  Country: US (occurrence: US)
  Receive Date: 20151218
  Receipt Date: 20151218
  Transmission Date: 20160305
  Serious: No
  Sender: FDA-Public Use
  Company Number: US-JNJFOC-20150308398

PATIENT
  Sex: Male
  Weight: 83.46 kg

DRUGS (3)
  1. MENS ROGAINE EXTRA STRENGTH [Suspect]
     Active Substance: MINOXIDIL
     Route: 061
  2. MENS ROGAINE EXTRA STRENGTH [Suspect]
     Active Substance: MINOXIDIL
     Indication: ALOPECIA
     Dosage: DOSAGE - THE SIZE OF A COUPLE OF THUMBPRINTS.????ABOUT 4 MONTHS AGO
     Route: 061
  3. BIOTIN [Concomitant]
     Active Substance: BIOTIN
     Indication: HAIR DISORDER
     Dosage: 4 YEARS
     Route: 065

REACTIONS (2)
  - Product dropper issue [Unknown]
  - Alopecia [Not Recovered/Not Resolved]
